FAERS Safety Report 14107280 (Version 1)
Quarter: 2017Q4

REPORT INFORMATION
  Report Type: Spontaneous
  Country: US (occurrence: US)
  Receive Date: 20171019
  Receipt Date: 20171019
  Transmission Date: 20180321
  Serious: Yes (Other)
  Sender: FDA-Public Use
  Company Number: US-009507513-1710USA008119

PATIENT
  Age: 57 Year
  Sex: Male

DRUGS (2)
  1. JANUVIA [Suspect]
     Active Substance: SITAGLIPTIN PHOSPHATE
     Indication: BLOOD GLUCOSE INCREASED
     Dosage: UNK
     Route: 048
     Dates: start: 20170924
  2. GLIPIZIDE. [Concomitant]
     Active Substance: GLIPIZIDE
     Dosage: UNK

REACTIONS (6)
  - Blood pressure increased [Recovering/Resolving]
  - Hepatitis C [Not Recovered/Not Resolved]
  - Blood glucose increased [Not Recovered/Not Resolved]
  - Product use in unapproved indication [Unknown]
  - Insomnia [Unknown]
  - Arthralgia [Not Recovered/Not Resolved]

NARRATIVE: CASE EVENT DATE: 2017
